FAERS Safety Report 20589082 (Version 2)
Quarter: 2022Q3

REPORT INFORMATION
  Report Type: Report from Study
  Country: DE (occurrence: DE)
  Receive Date: 20220314
  Receipt Date: 20220815
  Transmission Date: 20221027
  Serious: Yes (Other)
  Sender: FDA-Public Use
  Company Number: DE-UCBSA-2022012850

PATIENT
  Sex: Female

DRUGS (1)
  1. CERTOLIZUMAB PEGOL [Suspect]
     Active Substance: CERTOLIZUMAB PEGOL
     Indication: Rheumatoid arthritis
     Dosage: 200 MILLIGRAM, EV 2 WEEKS(QOW)

REACTIONS (2)
  - Malignant melanoma [Not Recovered/Not Resolved]
  - Dermal cyst [Not Recovered/Not Resolved]

NARRATIVE: CASE EVENT DATE: 20220101
